FAERS Safety Report 6203254-4 (Version None)
Quarter: 2009Q2

REPORT INFORMATION
  Report Type: 
  Country: None (occurrence: None)
  Receive Date: 20090527
  Receipt Date: 20090519
  Transmission Date: 20091009
  Serious: Yes (Other)
  Sender: FDA-Public Use
  Company Number: US-ROCHE-632482

PATIENT
  Sex: Female

DRUGS (4)
  1. PEG-INTERFERON A-2A (RO 25-8310) [Suspect]
     Indication: HEPATITIS C
     Route: 065
     Dates: start: 20020101
  2. PEG-INTERFERON A-2A (RO 25-8310) [Suspect]
     Dosage: FORM: PRE-FILLED SYRINGE
     Route: 065
     Dates: start: 20090225
  3. RIBAVIRIN [Suspect]
     Indication: HEPATITIS C
     Route: 065
     Dates: start: 20020101
  4. RIBAVIRIN [Suspect]
     Dosage: DIVIDED DOSES
     Route: 065
     Dates: start: 20090225

REACTIONS (4)
  - ASCITES [None]
  - LIVER TRANSPLANT [None]
  - POLLAKIURIA [None]
  - PRODUCTIVE COUGH [None]
